FAERS Safety Report 5684811-0 (Version None)
Quarter: 2008Q1

REPORT INFORMATION
  Report Type: 
  Country: None (occurrence: None)
  Receive Date: 20080328
  Receipt Date: 20071008
  Transmission Date: 20080703
  Serious: Yes (Hospitalization)
  Sender: FDA-Public Use
  Company Number: US-BRISTOL-MYERS SQUIBB COMPANY-13933437

PATIENT
  Sex: Female
  Weight: 61 kg

DRUGS (2)
  1. ERBITUX [Suspect]
     Indication: COLON CANCER
     Route: 041
     Dates: start: 20070725, end: 20070822
  2. IRINOTECAN HCL [Suspect]
     Indication: COLON CANCER
     Route: 041
     Dates: start: 20070725, end: 20070822

REACTIONS (4)
  - GASTRITIS [None]
  - HAEMATOCRIT DECREASED [None]
  - HAEMOGLOBIN DECREASED [None]
  - OESOPHAGITIS [None]
